FAERS Safety Report 9861085 (Version 1)
Quarter: 2014Q1

REPORT INFORMATION
  Report Type: Spontaneous
  Country: US (occurrence: US)
  Receive Date: 20140202
  Receipt Date: 20140202
  Transmission Date: 20141002
  Serious: No
  Sender: FDA-Public Use
  Company Number: US-ALLERGAN-1303323US

PATIENT
  Age: 61 Year
  Sex: Female

DRUGS (3)
  1. BOTOX [Suspect]
     Indication: SKIN WRINKLING
     Dosage: 50 UNITS, SINGLE
     Route: 030
     Dates: start: 20120307, end: 20120307
  2. BOTOX [Suspect]
     Indication: SKIN WRINKLING
  3. JUVEDERM ULTRA PLUS [Suspect]
     Indication: SKIN WRINKLING
     Dosage: UNK
     Dates: start: 20120307, end: 20120307

REACTIONS (2)
  - Skin discolouration [Recovered/Resolved]
  - Off label use [Unknown]
